FAERS Safety Report 7219655-1 (Version None)
Quarter: 2011Q1

REPORT INFORMATION
  Report Type: 
  Country: None (occurrence: None)
  Receive Date: 20110111
  Receipt Date: 20101228
  Transmission Date: 20110831
  Serious: Yes (Other)
  Sender: FDA-Public Use
  Company Number: PHHY2010IT86777

PATIENT
  Sex: Male

DRUGS (4)
  1. TESTOVIRON [Concomitant]
     Dosage: 100 MG, EVERY 21DAYS SINCE ABOUT 4/5 YEARS
     Route: 030
  2. ALENDROS [Suspect]
     Indication: OSTEOPOROSIS
     Dosage: 70 MG, UNK
     Dates: start: 20100224, end: 20101124
  3. EXJADE [Suspect]
     Indication: THALASSAEMIA BETA
     Dosage: 1500 MG, QD
     Route: 048
     Dates: start: 20100223, end: 20101124
  4. DIBASE [Concomitant]
     Dosage: 25.000 UI/2.5ML ORAL SOLUTION, 2.5ML ORAL
     Route: 048
     Dates: start: 20100224, end: 20101202

REACTIONS (2)
  - GASTRIC ULCER PERFORATION [None]
  - PERITONITIS [None]
